FAERS Safety Report 7661584-3 (Version None)
Quarter: 2011Q3

REPORT INFORMATION
  Report Type: 
  Country: None (occurrence: None)
  Receive Date: 20110805
  Receipt Date: 20110726
  Transmission Date: 20111222
  Serious: Yes (Other)
  Sender: FDA-Public Use
  Company Number: JP-CELGENEUS-087-21880-11063554

PATIENT
  Sex: Female

DRUGS (7)
  1. REVLIMID [Suspect]
     Indication: MULTIPLE MYELOMA
     Dosage: 10 MILLIGRAM
     Route: 048
     Dates: start: 20110412, end: 20110502
  2. DEXAMETHASONE [Suspect]
     Indication: MULTIPLE MYELOMA
     Dosage: 20 MILLIGRAM
     Route: 048
     Dates: start: 20110412, end: 20110415
  3. MAGMITT [Concomitant]
     Indication: PROPHYLAXIS
     Dosage: 990 MILLIGRAM
     Route: 048
     Dates: start: 20110412
  4. ASPIRIN [Concomitant]
     Indication: PROPHYLAXIS
     Dosage: 100 MILLIGRAM
     Route: 048
     Dates: start: 20110412, end: 20110502
  5. PROTECADIN [Concomitant]
     Indication: GASTRITIS
     Dosage: 20 MILLIGRAM
     Route: 048
     Dates: start: 20110412
  6. ACETAMINOPHEN [Concomitant]
     Indication: ILL-DEFINED DISORDER
     Dosage: 1200 MILLIGRAM
     Route: 048
     Dates: start: 20110412
  7. LAXOBERON [Concomitant]
     Indication: PROPHYLAXIS
     Dosage: 20-30 DROPS
     Route: 048
     Dates: start: 20110412

REACTIONS (2)
  - CONSTIPATION [None]
  - HYPERAMYLASAEMIA [None]
